FAERS Safety Report 11265305 (Version 1)
Quarter: 2015Q3

REPORT INFORMATION
  Report Type: Spontaneous
  Country: US (occurrence: None)
  Receive Date: 20150710
  Receipt Date: 20150710
  Transmission Date: 20151125
  Serious: Yes (Hospitalization)
  Sender: FDA-Public Use
  Company Number: None

PATIENT
  Age: 72 Year
  Sex: Male
  Weight: 58.6 kg

DRUGS (5)
  1. CLOZAPINE 50 MG [Suspect]
     Active Substance: CLOZAPINE
     Indication: SCHIZOPHRENIA
     Route: 048
  2. VITAMIN B12 [Concomitant]
     Active Substance: CYANOCOBALAMIN
  3. ASPIRIN. [Concomitant]
     Active Substance: ASPIRIN
  4. NORVASC [Concomitant]
     Active Substance: AMLODIPINE BESYLATE
  5. AMANTADINE [Concomitant]
     Active Substance: AMANTADINE

REACTIONS (4)
  - Neuroleptic malignant syndrome [None]
  - Mental status changes [None]
  - Muscle rigidity [None]
  - Agitation [None]

NARRATIVE: CASE EVENT DATE: 20140803
